FAERS Safety Report 10162542 (Version 1)
Quarter: 2014Q2

REPORT INFORMATION
  Report Type: Spontaneous
  Country: IN (occurrence: IN)
  Receive Date: 20140509
  Receipt Date: 20140509
  Transmission Date: 20141212
  Serious: Yes (Other)
  Sender: FDA-Public Use
  Company Number: IN-BAYER-2014-065076

PATIENT
  Age: 41 Year
  Sex: Female

DRUGS (1)
  1. DACARBAZINE [Suspect]
     Indication: MALIGNANT MELANOMA
     Dosage: 800MG/SQM EVERY 21 DAYS
     Dates: start: 200906

REACTIONS (1)
  - Acute promyelocytic leukaemia [Recovered/Resolved]
